FAERS Safety Report 7050371-5 (Version None)
Quarter: 2010Q4

REPORT INFORMATION
  Report Type: 
  Country: None (occurrence: None)
  Receive Date: 20101018
  Receipt Date: 20101006
  Transmission Date: 20110411
  Serious: Yes (Other)
  Sender: FDA-Public Use
  Company Number: CA-ELI_LILLY_AND_COMPANY-CA201009005611

PATIENT
  Sex: Female

DRUGS (9)
  1. FORTEO [Suspect]
     Indication: OSTEOPOROSIS
     Dosage: 20 UG, DAILY (1/D)
     Route: 058
     Dates: start: 20100811
  2. FORTEO [Suspect]
     Indication: OSTEOPOROSIS
  3. MULTI-VITAMIN [Concomitant]
     Dosage: UNK, UNKNOWN
     Route: 065
  4. OMEPRAZOLE [Concomitant]
     Dosage: UNK, UNKNOWN
     Route: 065
  5. ALLOPURINOL [Concomitant]
     Dosage: UNK, UNKNOWN
     Route: 065
  6. TIMOLOL MALEATE [Concomitant]
     Dosage: UNK, UNKNOWN
     Route: 065
  7. VIT D [Concomitant]
     Dosage: UNK, UNKNOWN
     Route: 065
  8. ARTHROTEC [Concomitant]
     Dosage: UNK, UNKNOWN
     Route: 065
  9. CALCIUM W/MAGNESIUM [Concomitant]
     Dosage: UNK, UNKNOWN
     Route: 065

REACTIONS (3)
  - INJECTION SITE HAEMATOMA [None]
  - KNEE ARTHROPLASTY [None]
  - MUSCLE SPASMS [None]
